FAERS Safety Report 8420496-8 (Version None)
Quarter: 2012Q2

REPORT INFORMATION
  Report Type: 
  Country: None (occurrence: None)
  Receive Date: 20120608
  Receipt Date: 20120528
  Transmission Date: 20120825
  Serious: Yes (Hospitalization, Other)
  Sender: FDA-Public Use
  Company Number: TW-AMGEN-TWNSP2012034742

PATIENT
  Age: 57 Year
  Sex: Female

DRUGS (9)
  1. OMEPRAZOLE [Concomitant]
     Dosage: 20MG QD
  2. MELOXICAM [Concomitant]
     Dosage: 15MG QD
  3. FOLIC ACID [Concomitant]
     Dosage: 5MG QD
  4. BISOPROLOL FUMARATE [Concomitant]
     Dosage: 2.5MG QD
  5. ULTRACET [Concomitant]
     Dosage: 1 TABLET TID
  6. ENBREL [Suspect]
     Indication: ANKYLOSING SPONDYLITIS
     Dosage: 25MG, BIW
     Route: 058
  7. COZAAR [Concomitant]
     Dosage: 50MG QD
  8. GABAPENTIN [Concomitant]
     Dosage: 300MG TID
  9. PREDNISOLONE [Concomitant]
     Dosage: 5MG BID

REACTIONS (5)
  - JOINT SWELLING [None]
  - FRACTURE [None]
  - ROAD TRAFFIC ACCIDENT [None]
  - FALL [None]
  - CELLULITIS [None]
